FAERS Safety Report 6954153-1 (Version None)
Quarter: 2010Q3

REPORT INFORMATION
  Report Type: 
  Country: None (occurrence: None)
  Receive Date: 20100829
  Receipt Date: 20100707
  Transmission Date: 20110219
  Serious: No
  Sender: FDA-Public Use
  Company Number: US-ABBOTT-10P-163-0656385-00

PATIENT
  Sex: Female
  Weight: 77.18 kg

DRUGS (7)
  1. NIASPAN [Suspect]
     Indication: BLOOD CHOLESTEROL INCREASED
     Dates: start: 20100301
  2. NIASPAN [Suspect]
     Dates: start: 20100101, end: 20100101
  3. NIASPAN [Suspect]
     Dates: start: 20100101, end: 20100101
  4. NIASPAN [Suspect]
     Dates: start: 20100101
  5. FOSAMAX [Concomitant]
     Indication: OSTEOPENIA
     Dates: start: 20100601
  6. AMLODIPINE [Concomitant]
     Indication: HYPERTENSION
  7. OMEPRAZOLE [Concomitant]
     Indication: GASTROOESOPHAGEAL REFLUX DISEASE

REACTIONS (2)
  - FLUSHING [None]
  - PRURITUS [None]
